FAERS Safety Report 12253335 (Version 1)
Quarter: 2016Q2

REPORT INFORMATION
  Report Type: Spontaneous
  Country: GB (occurrence: GB)
  Receive Date: 20160411
  Receipt Date: 20160411
  Transmission Date: 20160815
  Serious: Yes (Other)
  Sender: FDA-Public Use
  Company Number: PHFR2016GB000615

PATIENT
  Sex: Female

DRUGS (1)
  1. VOLTAROL [Suspect]
     Active Substance: DICLOFENAC SODIUM
     Indication: ANALGESIC THERAPY
     Dosage: 100 MG, 18 HOURLY
     Route: 067

REACTIONS (1)
  - Incorrect route of drug administration [Unknown]
